FAERS Safety Report 6150210-0 (Version None)
Quarter: 2009Q2

REPORT INFORMATION
  Report Type: 
  Country: None (occurrence: None)
  Receive Date: 20090407
  Receipt Date: 20090325
  Transmission Date: 20091009
  Serious: Yes (Other)
  Sender: FDA-Public Use
  Company Number: 2008EU000476

PATIENT
  Age: 74 Year
  Sex: Female

DRUGS (3)
  1. PROGRAF [Suspect]
     Indication: RENAL TRANSPLANT
     Dosage: /D, ORAL
     Route: 048
     Dates: start: 20080201
  2. NEORAL [Suspect]
     Indication: RENAL TRANSPLANT
     Dosage: /D , ORAL
     Route: 048
     Dates: end: 20080201
  3. ATORVASTATIN CALCIUM [Suspect]
     Indication: RENAL TRANSPLANT
     Dosage: /D , ORAL
     Route: 048
     Dates: end: 20080101

REACTIONS (3)
  - BLOOD CREATINE PHOSPHOKINASE INCREASED [None]
  - MYALGIA [None]
  - MYOGLOBINURIA [None]
